FAERS Safety Report 5941761-X (Version None)
Quarter: 2008Q4

REPORT INFORMATION
  Report Type: 
  Country: None (occurrence: None)
  Receive Date: 20081105
  Receipt Date: 20081103
  Transmission Date: 20090506
  Serious: Yes (Hospitalization, Other)
  Sender: FDA-Public Use
  Company Number: PL-BRISTOL-MYERS SQUIBB COMPANY-13358171

PATIENT
  Age: 73 Year
  Sex: Female
  Weight: 45 kg

DRUGS (5)
  1. CISPLATIN [Suspect]
     Indication: NON-SMALL CELL LUNG CANCER
     Dosage: 100MG CUMULATIVE DOSE
     Route: 042
     Dates: start: 20060405, end: 20060405
  2. GEMCITABINE HCL [Suspect]
     Indication: NON-SMALL CELL LUNG CANCER
     Dosage: DAYS 1 + 8 Q 21 DAY. 1750MG CUMULATIVE DOSE
     Route: 042
     Dates: start: 20060405, end: 20060405
  3. KETOPROFEN [Concomitant]
     Route: 048
     Dates: start: 20060301, end: 20060412
  4. ONDANSETRON HYDROCHLORIDE [Concomitant]
     Route: 048
     Dates: start: 20060405, end: 20060410
  5. OMEPRAZOLE [Concomitant]
     Route: 048
     Dates: start: 20060407, end: 20060411

REACTIONS (5)
  - FATIGUE [None]
  - HYPOKALAEMIA [None]
  - HYPONATRAEMIA [None]
  - TUMOUR PAIN [None]
  - VOMITING [None]
